FAERS Safety Report 11108524 (Version 4)
Quarter: 2015Q2

REPORT INFORMATION
  Report Type: Spontaneous
  Country: US (occurrence: US)
  Receive Date: 20150513
  Receipt Date: 20150626
  Transmission Date: 20150821
  Serious: Yes (Hospitalization, Other)
  Sender: FDA-Public Use
  Company Number: US-AMGEN-USASP2015045517

PATIENT
  Age: 66 Year
  Sex: Female
  Weight: 68 kg

DRUGS (4)
  1. LIPITOR [Concomitant]
     Active Substance: ATORVASTATIN CALCIUM
     Indication: HYPOGLYCAEMIA
     Dosage: UNK
     Dates: start: 2008
  2. ENBREL [Suspect]
     Active Substance: ETANERCEPT
     Indication: RHEUMATOID ARTHRITIS
     Dosage: UNK, QWK
     Route: 065
  3. SYNTHROID [Concomitant]
     Active Substance: LEVOTHYROXINE SODIUM
     Indication: HYPOTHYROIDISM
     Dosage: UNK
     Dates: start: 2008
  4. AMBIEN [Concomitant]
     Active Substance: ZOLPIDEM TARTRATE
     Indication: INSOMNIA
     Dosage: UNK
     Dates: start: 2009

REACTIONS (24)
  - Rheumatoid arthritis [Unknown]
  - Cardiac valve disease [Unknown]
  - Immune system disorder [Unknown]
  - Heart valve replacement [Unknown]
  - Myocardial ischaemia [Unknown]
  - Pain [Unknown]
  - Fluid retention [Unknown]
  - Cardiac disorder [Unknown]
  - Myocardial depression [Unknown]
  - Bundle branch block left [Unknown]
  - Arteriosclerosis coronary artery [Unknown]
  - Cardiomyopathy [Unknown]
  - Autoimmune disorder [Unknown]
  - Cardiac failure congestive [Unknown]
  - Cardiac murmur [Unknown]
  - Chest pain [Unknown]
  - Congestive cardiomyopathy [Unknown]
  - Left ventricular dysfunction [Recovered/Resolved]
  - Fatigue [Unknown]
  - Anxiety [Unknown]
  - Hypothyroidism [Unknown]
  - Dysphagia [Unknown]
  - Hypertensive heart disease [Unknown]
  - Malaise [Unknown]

NARRATIVE: CASE EVENT DATE: 2013
